FAERS Safety Report 25063618 (Version 1)
Quarter: 2025Q1

REPORT INFORMATION
  Report Type: Spontaneous
  Country: US (occurrence: None)
  Receive Date: 20250310
  Receipt Date: 20250310
  Transmission Date: 20250409
  Serious: Yes (Hospitalization)
  Sender: FDA-CTU
  Company Number: None

PATIENT
  Age: 79 Year
  Sex: Male
  Weight: 68 kg

DRUGS (1)
  1. SERTRALINE HYDROCHLORIDE [Suspect]
     Active Substance: SERTRALINE HYDROCHLORIDE
     Indication: Affective disorder
     Dosage: 25.00 MG DAILY ORAL
     Route: 048
     Dates: end: 20240908

REACTIONS (5)
  - Dementia [None]
  - Insomnia [None]
  - Agitation [None]
  - Hallucination, visual [None]
  - Treatment noncompliance [None]

NARRATIVE: CASE EVENT DATE: 20240918
